FAERS Safety Report 11267565 (Version 1)
Quarter: 2015Q3

REPORT INFORMATION
  Report Type: Spontaneous
  Country: US (occurrence: US)
  Receive Date: 20150713
  Receipt Date: 20150713
  Transmission Date: 20151125
  Serious: Yes (Hospitalization)
  Sender: FDA-Public Use
  Company Number: US-MPIJNJ-2013MPI000501

PATIENT
  Age: 59 Year
  Sex: Female

DRUGS (3)
  1. BENDAMUSTINE [Concomitant]
     Active Substance: BENDAMUSTINE
     Dosage: 149 MG, UNK
  2. VELCADE [Suspect]
     Active Substance: BORTEZOMIB
     Indication: LYMPHOMA
     Dosage: 2.1 MG, UNK
     Route: 042
     Dates: start: 20130926
  3. BUPIVACAINE [Concomitant]
     Active Substance: BUPIVACAINE
     Dosage: UNK

REACTIONS (2)
  - Pneumonia [Unknown]
  - Product use issue [Unknown]

NARRATIVE: CASE EVENT DATE: 20130926
